FAERS Safety Report 20617950 (Version 1)
Quarter: 2022Q1

REPORT INFORMATION
  Report Type: Spontaneous
  Country: ES (occurrence: ES)
  Receive Date: 20220321
  Receipt Date: 20220321
  Transmission Date: 20220424
  Serious: Yes (Death, Hospitalization, Other)
  Sender: FDA-Public Use
  Company Number: ES-LUPIN PHARMACEUTICALS INC.-2022-03977

PATIENT
  Age: 95 Year
  Sex: Female

DRUGS (5)
  1. LORAZEPAM [Interacting]
     Active Substance: LORAZEPAM
     Indication: Delirium
     Dosage: 2 MILLIGRAM, QD
     Route: 065
  2. QUETIAPINE FUMARATE [Interacting]
     Active Substance: QUETIAPINE FUMARATE
     Indication: Delirium
     Dosage: 50 MILLIGRAM, QD
     Route: 065
  3. SERTRALINE [Interacting]
     Active Substance: SERTRALINE HYDROCHLORIDE
     Indication: Pseudodementia
     Dosage: 50 MILLIGRAM, QD
     Route: 065
  4. RISPERIDONE [Interacting]
     Active Substance: RISPERIDONE
     Indication: Delirium
     Dosage: 4 MILLIGRAM, QD
     Route: 065
  5. ACENOCOUMAROL [Interacting]
     Active Substance: ACENOCOUMAROL
     Indication: Product used for unknown indication
     Dosage: UNK
     Route: 065

REACTIONS (2)
  - Serotonin syndrome [Fatal]
  - Drug interaction [Fatal]
